FAERS Safety Report 6252059-7 (Version None)
Quarter: 2009Q2

REPORT INFORMATION
  Report Type: 
  Country: None (occurrence: None)
  Receive Date: 20090630
  Receipt Date: 20040407
  Transmission Date: 20091009
  Serious: Yes (Hospitalization)
  Sender: FDA-Public Use
  Company Number: US-ROCHE-638776

PATIENT
  Sex: Male

DRUGS (13)
  1. ENFUVIRTIDE [Suspect]
     Route: 065
     Dates: start: 20030911, end: 20051215
  2. INVIRASE [Concomitant]
     Dates: start: 20020604, end: 20080115
  3. NORVIR [Concomitant]
     Dates: start: 20020604, end: 20080814
  4. BACTRIM DS [Concomitant]
     Dates: start: 20020604, end: 20080814
  5. SPORANOX [Concomitant]
     Dosage: FREQUENCY: QD
     Dates: start: 20030911, end: 20060101
  6. KALETRA [Concomitant]
     Dates: start: 20080115, end: 20080814
  7. ISENTRESS [Concomitant]
     Dates: start: 20080116, end: 20080814
  8. PREZISTA [Concomitant]
     Dates: start: 20080519, end: 20080814
  9. AVELOX [Concomitant]
     Dosage: FREQUENCY: QD
     Dates: start: 20070514, end: 20070530
  10. AVELOX [Concomitant]
     Dosage: FREQUENCY: QD
     Dates: start: 20080519, end: 20080602
  11. ZITHROMAX [Concomitant]
     Dosage: FREQUENCY: QD
     Dates: start: 20080317, end: 20080814
  12. ZITHROMAX [Concomitant]
  13. DIFLUCAN [Concomitant]
     Dosage: FREQUENCY: QD

REACTIONS (1)
  - DRUG TOXICITY [None]
